FAERS Safety Report 8123346-2 (Version None)
Quarter: 2012Q1

REPORT INFORMATION
  Report Type: 
  Country: None (occurrence: None)
  Receive Date: 20120208
  Receipt Date: 20120202
  Transmission Date: 20120608
  Serious: Yes (Hospitalization, Other)
  Sender: FDA-Public Use
  Company Number: US-PFIZER INC-2012000796

PATIENT
  Sex: Female
  Weight: 71.202 kg

DRUGS (7)
  1. LOSARTAN [Concomitant]
     Indication: HYPERTENSION
     Dosage: UNK
  2. LIPITOR [Suspect]
     Indication: BLOOD CHOLESTEROL INCREASED
     Dosage: 20 MG, 1X/DAY
     Route: 048
  3. NEXIUM [Concomitant]
     Indication: GASTROOESOPHAGEAL REFLUX DISEASE
     Dosage: UNK
  4. KLONOPIN [Concomitant]
     Dosage: UNK
  5. SYNTHROID [Concomitant]
     Indication: HYPOTHYROIDISM
     Dosage: UNK
  6. PROPRANOLOL [Concomitant]
     Indication: HYPERTENSION
     Dosage: UNK
  7. TIKOSYN [Concomitant]
     Dosage: UNK

REACTIONS (5)
  - BONE LOSS [None]
  - HAEMORRHAGE [None]
  - DEPRESSION [None]
  - HEART RATE IRREGULAR [None]
  - ATRIAL FIBRILLATION [None]
